FAERS Safety Report 12436224 (Version 3)
Quarter: 2016Q4

REPORT INFORMATION
  Report Type: Spontaneous
  Country: US (occurrence: US)
  Receive Date: 20160605
  Receipt Date: 20161117
  Transmission Date: 20170207
  Serious: No
  Sender: FDA-Public Use
  Company Number: US-CELGENEUS-USA-2016056224

PATIENT
  Sex: Female

DRUGS (3)
  1. SIMVASTATIN. [Concomitant]
     Active Substance: SIMVASTATIN
     Indication: PRODUCT USED FOR UNKNOWN INDICATION
     Route: 065
  2. OTEZLA [Suspect]
     Active Substance: APREMILAST
     Route: 048
     Dates: start: 2016, end: 20160930
  3. OTEZLA [Suspect]
     Active Substance: APREMILAST
     Indication: PSORIASIS
     Route: 048
     Dates: start: 20160420, end: 2016

REACTIONS (11)
  - Abdominal discomfort [Unknown]
  - Nausea [Unknown]
  - Therapy non-responder [Unknown]
  - Headache [Unknown]
  - Nasal congestion [Unknown]
  - Diarrhoea [Unknown]
  - Pruritus [Unknown]
  - Dry skin [Unknown]
  - Abdominal pain upper [Unknown]
  - Dizziness [Unknown]
  - Skin disorder [Unknown]

NARRATIVE: CASE EVENT DATE: 2016
